FAERS Safety Report 24387326 (Version 1)
Quarter: 2024Q4

REPORT INFORMATION
  Report Type: Spontaneous
  Country: FR (occurrence: FR)
  Receive Date: 20241002
  Receipt Date: 20241002
  Transmission Date: 20250115
  Serious: Yes (Hospitalization)
  Sender: MYLAN
  Company Number: None

PATIENT
  Age: 67 Year
  Sex: Female

DRUGS (4)
  1. LAMALINE (ACETAMINOPHEN\CAFFEINE\OPIUM) [Suspect]
     Active Substance: ACETAMINOPHEN\CAFFEINE\OPIUM
     Indication: Neuralgia
     Dosage: 6 DOSAGE FORM, QD
     Route: 048
     Dates: start: 20240110, end: 20240221
  2. NEURONTIN [Suspect]
     Active Substance: GABAPENTIN
     Indication: Neuralgia
     Dosage: 100 MILLIGRAM, QD
     Route: 048
     Dates: end: 20240223
  3. LYRICA [Suspect]
     Active Substance: PREGABALIN
     Indication: Neuralgia
     Dosage: 25 MILLIGRAM, QD
     Route: 048
     Dates: start: 20240203, end: 20240223
  4. RIVOTRIL [Suspect]
     Active Substance: CLONAZEPAM
     Indication: Neuralgia
     Dosage: 0.9 MILLIGRAM, QD
     Route: 048
     Dates: start: 20240209, end: 20240223

REACTIONS (1)
  - Encephalopathy [Recovered/Resolved]

NARRATIVE: CASE EVENT DATE: 20240219
